FAERS Safety Report 4359649-7 (Version None)
Quarter: 2004Q2

REPORT INFORMATION
  Report Type: 
  Country: None (occurrence: None)
  Receive Date: 20040513
  Receipt Date: 20040507
  Transmission Date: 20050107
  Serious: Yes (Hospitalization)
  Sender: FDA-Public Use
  Company Number: JP-2004-025134

PATIENT
  Age: 34 Year
  Sex: Female

DRUGS (1)
  1. PROSCOPE 300(IOPROMIDE) [Suspect]
     Indication: COMPUTERISED TOMOGRAM
     Dosage: INTRAVENOUS
     Route: 042
     Dates: start: 20040427

REACTIONS (4)
  - DYSPNOEA [None]
  - OXYGEN SATURATION DECREASED [None]
  - SHOCK [None]
  - SWELLING FACE [None]
